FAERS Safety Report 5143593-1 (Version None)
Quarter: 2006Q4

REPORT INFORMATION
  Report Type: 
  Country: None (occurrence: None)
  Receive Date: 20061103
  Receipt Date: 20060905
  Transmission Date: 20070319
  Serious: Yes (Other)
  Sender: FDA-Public Use
  Company Number: 200614579EU

PATIENT
  Age: 47 Year
  Sex: Male

DRUGS (11)
  1. NICORETTE [Suspect]
     Indication: SMOKING CESSATION THERAPY
     Route: 002
     Dates: start: 20060615
  2. PIOGLITAZONE HCL [Concomitant]
     Indication: DIABETES MELLITUS
     Dates: start: 20050101
  3. RISPERIDONE [Concomitant]
     Indication: SCHIZOPHRENIA
     Dates: start: 20050101
  4. LITHIUM CARBONATE [Concomitant]
     Indication: BIPOLAR DISORDER
     Dates: start: 20050101
  5. GLYBURIDE [Concomitant]
     Indication: DIABETES MELLITUS
     Dates: start: 19910101
  6. METFORMIN HCL [Concomitant]
     Indication: DIABETES MELLITUS
     Dates: start: 19910101
  7. RAMIPRIL [Concomitant]
     Indication: HYPERTENSION
     Dates: start: 19960101
  8. PIMOZIDE [Concomitant]
     Indication: SCHIZOPHRENIA
     Dates: start: 20060927
  9. QUETIAPINE FUMARATE [Concomitant]
     Indication: SCHIZOPHRENIA
     Dosage: 25MG AS REQUIRED
     Dates: start: 20050101
  10. TOCOPHEROL CONCENTRATE CAP [Concomitant]
     Indication: VITAMIN SUPPLEMENTATION
     Dates: start: 20050101
  11. CENTRUM FORTE [Concomitant]
     Indication: VITAMIN SUPPLEMENTATION

REACTIONS (10)
  - ANXIETY [None]
  - DEPENDENCE [None]
  - DRUG WITHDRAWAL SYNDROME [None]
  - DYSPNOEA [None]
  - FLUSHING [None]
  - IRRITABILITY [None]
  - MOOD SWINGS [None]
  - MUSCULAR WEAKNESS [None]
  - PANIC REACTION [None]
  - RESTLESSNESS [None]
